FAERS Safety Report 6198597-7 (Version None)
Quarter: 2009Q2

REPORT INFORMATION
  Report Type: 
  Country: None (occurrence: None)
  Receive Date: 20090521
  Receipt Date: 20090515
  Transmission Date: 20091009
  Serious: Yes (Other)
  Sender: FDA-Public Use
  Company Number: DK-BAXTER-2009BH008743

PATIENT

DRUGS (1)
  1. SEVOFLURANE [Suspect]
     Indication: DRUG USE FOR UNKNOWN INDICATION
     Route: 055

REACTIONS (3)
  - BLOOD PRESSURE DECREASED [None]
  - DRUG PRESCRIBING ERROR [None]
  - MEDICATION ERROR [None]
